FAERS Safety Report 13720742 (Version 1)
Quarter: 2017Q3

REPORT INFORMATION
  Report Type: Spontaneous
  Country: US (occurrence: US)
  Receive Date: 20170706
  Receipt Date: 20170706
  Transmission Date: 20171127
  Serious: Yes (Other)
  Sender: FDA-Public Use
  Company Number: US-STRIDES ARCOLAB LIMITED-2017SP010381

PATIENT

DRUGS (3)
  1. PREDNISOLONE ACETATE. [Concomitant]
     Active Substance: PREDNISOLONE ACETATE
     Indication: PRODUCT USED FOR UNKNOWN INDICATION
     Dosage: UNKNOWN
     Route: 065
  2. VANCOMYCIN [Suspect]
     Active Substance: VANCOMYCIN
     Indication: INFECTION PROPHYLAXIS
     Dosage: 1.0MG/0.1 CC, UNKNOWN
  3. OFLOXACIN. [Concomitant]
     Active Substance: OFLOXACIN
     Indication: PRODUCT USED FOR UNKNOWN INDICATION
     Dosage: UNKNOWN
     Route: 065

REACTIONS (10)
  - Retinal vasculitis [Recovered/Resolved]
  - Retinal artery occlusion [Recovered/Resolved]
  - Eye inflammation [Not Recovered/Not Resolved]
  - Retinal haemorrhage [Unknown]
  - Conjunctival hyperaemia [Unknown]
  - Visual field defect [Recovered/Resolved]
  - Visual impairment [Recovered/Resolved]
  - Pupillary reflex impaired [Recovered/Resolved]
  - Corneal oedema [Unknown]
  - Retinal ischaemia [Recovered/Resolved]
